FAERS Safety Report 6309602-9 (Version None)
Quarter: 2009Q3

REPORT INFORMATION
  Report Type: 
  Country: None (occurrence: None)
  Receive Date: 20090814
  Receipt Date: 20090805
  Transmission Date: 20100115
  Serious: Yes (Other)
  Sender: FDA-Public Use
  Company Number: CH-JNJFOC-20090701707

PATIENT
  Age: 41 Year
  Sex: Male

DRUGS (9)
  1. DARUNAVIR [Suspect]
     Route: 048
  2. DARUNAVIR [Suspect]
     Indication: HIV INFECTION
     Route: 048
  3. TACROLIMUS [Interacting]
  4. TACROLIMUS [Interacting]
     Indication: IMMUNOSUPPRESSION
  5. RITONAVIR [Suspect]
     Route: 048
  6. RITONAVIR [Suspect]
     Indication: HIV INFECTION
     Route: 048
  7. ETRAVIRINE [Concomitant]
     Indication: HIV INFECTION
  8. RALTEGRAVIR [Concomitant]
     Indication: HIV INFECTION
  9. TENOFOVIR [Concomitant]
     Indication: HIV INFECTION

REACTIONS (3)
  - DRUG INTERACTION [None]
  - IMMUNOSUPPRESSANT DRUG LEVEL INCREASED [None]
  - TRANSPLANT FAILURE [None]
